FAERS Safety Report 24111925 (Version 3)
Quarter: 2024Q3

REPORT INFORMATION
  Report Type: Spontaneous
  Country: FR (occurrence: None)
  Receive Date: 20240718
  Receipt Date: 20240814
  Transmission Date: 20241016
  Serious: Yes (Hospitalization)
  Sender: ASTRAZENECA
  Company Number: 2024A161089

PATIENT
  Sex: Male
  Weight: 107 kg

DRUGS (1)
  1. TAGRISSO [Suspect]
     Active Substance: OSIMERTINIB
     Indication: Lung neoplasm malignant
     Route: 048
     Dates: start: 20240201

REACTIONS (5)
  - Respiratory muscle weakness [Unknown]
  - Platelet count decreased [Unknown]
  - Fatigue [Unknown]
  - Dyspnoea exertional [Not Recovered/Not Resolved]
  - Acne [Recovered/Resolved]
